FAERS Safety Report 4961317-5 (Version None)
Quarter: 2006Q2

REPORT INFORMATION
  Report Type: 
  Country: None (occurrence: None)
  Receive Date: 20060403
  Receipt Date: 20051028
  Transmission Date: 20061013
  Serious: Yes (Hospitalization, Congenital Anomaly, Other)
  Sender: FDA-Public Use
  Company Number: US-MERCK-0511USA00152

PATIENT
  Age: 66 Year
  Sex: Male
  Weight: 86 kg

DRUGS (10)
  1. ALLOPURINOL [Concomitant]
     Route: 065
  2. CATAPRES [Concomitant]
     Indication: HYPERTENSION
     Route: 065
  3. TYLENOL (CAPLET) [Concomitant]
     Route: 065
  4. ADVIL [Concomitant]
     Route: 065
  5. MOTRIN [Concomitant]
     Route: 065
  6. CORGARD [Concomitant]
     Indication: HYPERTENSION
     Route: 048
     Dates: start: 19860101, end: 20050101
  7. ASPIRIN [Concomitant]
     Route: 048
     Dates: start: 19950101, end: 20050101
  8. VIOXX [Suspect]
     Indication: BACK PAIN
     Route: 048
     Dates: start: 19990101, end: 20040101
  9. VIOXX [Suspect]
     Route: 048
     Dates: start: 19990101, end: 20040101
  10. LIPITOR [Concomitant]
     Indication: BLOOD CHOLESTEROL INCREASED
     Route: 048
     Dates: start: 20000101, end: 20041201

REACTIONS (5)
  - ANGINA PECTORIS [None]
  - CORONARY ARTERY DISEASE [None]
  - DIABETES MELLITUS [None]
  - HEART DISEASE CONGENITAL [None]
  - MYOCARDIAL INFARCTION [None]
